FAERS Safety Report 23518170 (Version 1)
Quarter: 2024Q1

REPORT INFORMATION
  Report Type: Spontaneous
  Country: NL (occurrence: NL)
  Receive Date: 20240213
  Receipt Date: 20240213
  Transmission Date: 20240410
  Serious: Yes (Other)
  Sender: FDA-Public Use
  Company Number: None

PATIENT
  Age: 13 Year
  Sex: Male
  Weight: 104 kg

DRUGS (6)
  1. ARIPIPRAZOLE [Suspect]
     Active Substance: ARIPIPRAZOLE
     Indication: Autism spectrum disorder
     Dosage: 1 X 1.5 PIECES PER DAY,
     Route: 065
     Dates: start: 20190101
  2. CONCERTA [Suspect]
     Active Substance: METHYLPHENIDATE HYDROCHLORIDE
     Indication: Product used for unknown indication
     Route: 065
     Dates: start: 20230101
  3. SUMATRIPTAN SUCCINATE [Suspect]
     Active Substance: SUMATRIPTAN SUCCINATE
     Indication: Migraine without aura
     Dosage: IF NECESSARY, 1 TO 2 TIMES A DAY FOR MIGRAINE
     Route: 045
     Dates: start: 20180101, end: 20231114
  4. TRAMADOL [Suspect]
     Active Substance: TRAMADOL\TRAMADOL HYDROCHLORIDE
     Indication: Pain
     Dosage: 1 CAPSULE 3 TIMES A DAY?BRAND NAME NOT SPECIFIED
     Route: 065
     Dates: start: 20231101, end: 20231114
  5. RITALIN [Suspect]
     Active Substance: METHYLPHENIDATE HYDROCHLORIDE
     Indication: Product used for unknown indication
     Dosage: 1 PIECE ONCE PER DAY
     Route: 065
     Dates: start: 20230301
  6. FLUOXETINE [Suspect]
     Active Substance: FLUOXETINE HYDROCHLORIDE
     Indication: Affective disorder
     Dosage: 1 PIECE ONCE A DAY / 2 PIECES ONCE A DAY, / BRAND NAME NOT SPECIFIED
     Route: 065
     Dates: start: 20180101

REACTIONS (1)
  - Serotonin syndrome [Recovering/Resolving]
